FAERS Safety Report 21883548 (Version 2)
Quarter: 2023Q1

REPORT INFORMATION
  Report Type: Spontaneous
  Country: JP (occurrence: JP)
  Receive Date: 20230119
  Receipt Date: 20230201
  Transmission Date: 20230418
  Serious: Yes (Other)
  Sender: FDA-Public Use
  Company Number: JP-ASTELLAS-2023JP000512

PATIENT
  Age: 69 Year
  Sex: Male

DRUGS (3)
  1. MIRABEGRON [Suspect]
     Active Substance: MIRABEGRON
     Indication: Hypertonic bladder
     Route: 048
     Dates: end: 20230114
  2. DEXTROSE [Concomitant]
     Active Substance: DEXTROSE
     Indication: Blood glucose decreased
     Dosage: UNK UNK, UNKNOWN FREQ.
     Route: 065
     Dates: start: 20230114
  3. DEXTROSE [Concomitant]
     Active Substance: DEXTROSE
     Dosage: UNK UNK, UNKNOWN FREQ.
     Route: 065
     Dates: start: 20230116

REACTIONS (3)
  - Depressed level of consciousness [Unknown]
  - Hypoglycaemia [Recovering/Resolving]
  - Physical deconditioning [Unknown]

NARRATIVE: CASE EVENT DATE: 20230114
